FAERS Safety Report 9891191 (Version 1)
Quarter: 2014Q1

REPORT INFORMATION
  Report Type: Spontaneous
  Country: JP (occurrence: JP)
  Receive Date: 20140212
  Receipt Date: 20140212
  Transmission Date: 20141002
  Serious: Yes (Death)
  Sender: FDA-Public Use
  Company Number: JP-SA-2014SA013881

PATIENT
  Age: 42 Year
  Sex: Male
  Weight: 30 kg

DRUGS (2)
  1. LASIX [Suspect]
     Indication: OEDEMA
     Route: 048
  2. ALDACTONE [Concomitant]
     Indication: OEDEMA
     Route: 048

REACTIONS (1)
  - Myocardial infarction [Fatal]
